FAERS Safety Report 8433089-3 (Version None)
Quarter: 2012Q2

REPORT INFORMATION
  Report Type: 
  Country: None (occurrence: None)
  Receive Date: 20120323
  Receipt Date: 20110531
  Transmission Date: 20120825
  Serious: Yes (Hospitalization)
  Sender: FDA-Public Use
  Company Number: 163-21880-11060381

PATIENT
  Age: 62 Year
  Sex: Female

DRUGS (3)
  1. REVLIMID [Suspect]
     Dosage: 25 MG, DAILY X28, PO; 25 MG, DAILY X28, PO; 25 MG, DAILY X28, PO
     Route: 048
     Dates: start: 20100115
  2. REVLIMID [Suspect]
     Dosage: 25 MG, DAILY X28, PO; 25 MG, DAILY X28, PO; 25 MG, DAILY X28, PO
     Route: 048
     Dates: start: 20080401
  3. REVLIMID [Suspect]
     Dosage: 25 MG, DAILY X28, PO; 25 MG, DAILY X28, PO; 25 MG, DAILY X28, PO
     Route: 048
     Dates: start: 20090901

REACTIONS (5)
  - DIARRHOEA [None]
  - INSOMNIA [None]
  - COUGH [None]
  - HEART RATE INCREASED [None]
  - MUSCLE SPASMS [None]
